FAERS Safety Report 25361306 (Version 2)
Quarter: 2025Q3

REPORT INFORMATION
  Report Type: Spontaneous
  Country: US (occurrence: US)
  Receive Date: 20250527
  Receipt Date: 20250829
  Transmission Date: 20251020
  Serious: No
  Sender: NOVARTIS
  Company Number: US-002147023-NVSC2025US084069

PATIENT
  Sex: Female

DRUGS (1)
  1. ZOMETA [Suspect]
     Active Substance: ZOLEDRONIC ACID
     Indication: Product used for unknown indication
     Route: 065

REACTIONS (8)
  - Pyrexia [Unknown]
  - Arthralgia [Unknown]
  - Bone disorder [Unknown]
  - Dysphagia [Unknown]
  - Gait disturbance [Unknown]
  - Joint swelling [Unknown]
  - Peripheral swelling [Unknown]
  - Pain [Unknown]
